FAERS Safety Report 5827707-3 (Version None)
Quarter: 2008Q3

REPORT INFORMATION
  Report Type: 
  Country: None (occurrence: None)
  Receive Date: 20080730
  Receipt Date: 20080728
  Transmission Date: 20090109
  Serious: Yes (Other)
  Sender: FDA-Public Use
  Company Number: SE-ABBOTT-06P-150-0347461-00

PATIENT
  Sex: Female

DRUGS (3)
  1. HUMIRA [Suspect]
     Indication: RHEUMATOID ARTHRITIS
     Route: 058
     Dates: start: 20060228, end: 20060925
  2. HUMIRA [Suspect]
     Route: 058
     Dates: start: 20050830, end: 20051101
  3. KETOPROFEN [Concomitant]
     Indication: DRUG USE FOR UNKNOWN INDICATION
     Route: 048
     Dates: end: 20060901

REACTIONS (8)
  - CHROMATURIA [None]
  - DIARRHOEA [None]
  - GASTROINTESTINAL INFECTION [None]
  - HEPATITIS [None]
  - LIVER DISORDER [None]
  - PYREXIA [None]
  - SMOOTH MUSCLE ANTIBODY POSITIVE [None]
  - WEIGHT DECREASED [None]
